FAERS Safety Report 8356042-7 (Version None)
Quarter: 2012Q2

REPORT INFORMATION
  Report Type: 
  Country: None (occurrence: None)
  Receive Date: 20120511
  Receipt Date: 20120511
  Transmission Date: 20120825
  Serious: No
  Sender: FDA-Public Use
  Company Number: None

PATIENT
  Age: 54 Year
  Sex: Female
  Weight: 52.1637 kg

DRUGS (1)
  1. VENLAFAXINE HCL EXTENDED-RELEASE [Suspect]
     Indication: DEPRESSION
     Dosage: 75 MG ONCE DAILY PO
     Route: 048
     Dates: start: 20111101, end: 20120501

REACTIONS (11)
  - HYPERHIDROSIS [None]
  - PRODUCT QUALITY ISSUE [None]
  - VISION BLURRED [None]
  - INSOMNIA [None]
  - DIZZINESS [None]
  - HETEROPHORIA [None]
  - FEAR [None]
  - WITHDRAWAL SYNDROME [None]
  - GASTROINTESTINAL DISORDER [None]
  - TREMOR [None]
  - HEADACHE [None]
